FAERS Safety Report 14366841 (Version 1)
Quarter: 2018Q1

REPORT INFORMATION
  Report Type: Spontaneous
  Country: US (occurrence: US)
  Receive Date: 20180109
  Receipt Date: 20180109
  Transmission Date: 20180509
  Serious: No
  Sender: FDA-Public Use
  Company Number: US-LUNDBECK-DKLU2032517

PATIENT
  Age: 80 Year
  Sex: Male

DRUGS (1)
  1. NORTHERA [Suspect]
     Active Substance: DROXIDOPA
     Indication: PRODUCT USED FOR UNKNOWN INDICATION
     Dosage: SCHEDULE C / TITRATING
     Route: 048
     Dates: start: 20170605

REACTIONS (4)
  - Hypotension [Unknown]
  - Drug ineffective [Unknown]
  - Blood pressure decreased [Unknown]
  - Mood altered [Unknown]

NARRATIVE: CASE EVENT DATE: 20170606
